FAERS Safety Report 5410253-9 (Version None)
Quarter: 2007Q3

REPORT INFORMATION
  Report Type: 
  Country: None (occurrence: None)
  Receive Date: 20070808
  Receipt Date: 20070727
  Transmission Date: 20080115
  Serious: Yes (Hospitalization)
  Sender: FDA-Public Use
  Company Number: 236245K07USA

PATIENT
  Age: 49 Year
  Sex: Female

DRUGS (7)
  1. REBIF [Suspect]
     Indication: MULTIPLE SCLEROSIS
     Dosage: 44 MCG, 3 IN 1 WEEKS, SUBCUTANEOUS
     Route: 058
     Dates: start: 20070524
  2. COREG [Concomitant]
  3. DIGOXIN (DIGOXIN /00017701/) [Concomitant]
  4. ENALAPRIL (ENALAPRIL /00574901/) [Concomitant]
  5. COUMADIN [Concomitant]
  6. B12 (CYANOCOBALAMIN-TANNIN COMPLEX) [Concomitant]
  7. SYNTHROID [Concomitant]

REACTIONS (1)
  - SMALL INTESTINAL OBSTRUCTION [None]
